FAERS Safety Report 8846908 (Version 1)
Quarter: 2012Q4

REPORT INFORMATION
  Report Type: Spontaneous
  Country: US (occurrence: None)
  Receive Date: 20121016
  Receipt Date: 20121016
  Transmission Date: 20130627
  Serious: Yes (Hospitalization)
  Sender: FDA-Public Use
  Company Number: DAV-AE-DOX-12-01

PATIENT
  Age: 63 Year
  Sex: Male
  Weight: 105 kg

DRUGS (16)
  1. DOXAZOSIN MESYLATE [Suspect]
     Indication: PROSTATIC DISORDER
  2. VIAGRA [Suspect]
     Indication: ERECTILE DYSFUNCTION
     Route: 048
  3. LEVOTHYROXINE SODIUM [Concomitant]
  4. POMEGRANATE [Concomitant]
  5. MAGNESIUM/ZINC [Concomitant]
  6. SAW PALMETTO [Concomitant]
  7. MULTIVITAMINS/MULTIMINERAL DAILY SUPPLEMENT [Concomitant]
  8. ASPIRIN [Concomitant]
  9. CALCIUM WITH VITAMIN-D [Concomitant]
  10. FISH OIL [Concomitant]
  11. OMEGA-3 [Concomitant]
  12. MELATONIN [Concomitant]
  13. CLONAZEPAM [Suspect]
  14. VENLAFAXINE [Suspect]
     Indication: DEPRESSION
  15. VENLAFAXINE [Suspect]
     Indication: ANXIETY
  16. VENLAFAXINE [Suspect]
     Indication: RAPID EYE MOVEMENTS SLEEP ABNORMAL

REACTIONS (5)
  - Large intestine polyp [None]
  - Gallbladder operation [None]
  - Appendix disorder [None]
  - Hypotension [None]
  - Inhibitory drug interaction [None]
